FAERS Safety Report 8884825 (Version 2)
Quarter: 2013Q4

REPORT INFORMATION
  Report Type: Report from Study
  Country: GB (occurrence: GB)
  Receive Date: 20121105
  Receipt Date: 20131021
  Transmission Date: 20140711
  Serious: Yes (Other)
  Sender: FDA-Public Use
  Company Number: GB-AMGEN-GBRCT2012069065

PATIENT
  Age: 63 Year
  Sex: Male

DRUGS (1)
  1. ETANERCEPT [Suspect]
     Indication: RHEUMATOID ARTHRITIS
     Dosage: 25 MG, 2X/WEEK
     Route: 065
     Dates: start: 20050415, end: 201109

REACTIONS (2)
  - Hodgkin^s disease [Recovered/Resolved with Sequelae]
  - Epstein-Barr virus infection [Recovered/Resolved with Sequelae]
